FAERS Safety Report 9193950 (Version 2)
Quarter: 2013Q2

REPORT INFORMATION
  Report Type: Spontaneous
  Country: US (occurrence: None)
  Receive Date: 20120703
  Receipt Date: 20121031
  Transmission Date: 20140414
  Serious: No
  Sender: FDA-Public Use
  Company Number: PHEH2012US010168

PATIENT
  Age: 38 Year
  Sex: Female

DRUGS (6)
  1. GILENYA (FTY) CAPSULE [Suspect]
     Indication: MULTIPLE SCLEROSIS
     Route: 048
     Dates: start: 20120514
  2. AMANTADINE (AMANTADINE) [Concomitant]
  3. CYMBALTA (DULOXETINE HYDROCHLORIDE) [Concomitant]
  4. XANAX (ALPRAZOLAM) [Concomitant]
  5. VALIUM (DIAZEPAM) [Concomitant]
  6. TIZANIDINE (TIZANIDINE) [Concomitant]

REACTIONS (5)
  - Rhinorrhoea [None]
  - Sinus congestion [None]
  - Ear pain [None]
  - Ear discomfort [None]
  - Sinusitis [None]
